FAERS Safety Report 8986327 (Version 4)
Quarter: 2013Q2

REPORT INFORMATION
  Report Type: Spontaneous
  Country: FR (occurrence: None)
  Receive Date: 20121217
  Receipt Date: 20130621
  Transmission Date: 20140414
  Serious: Yes (Hospitalization)
  Sender: FDA-Public Use
  Company Number: CLOF-1002366

PATIENT
  Age: 11 Year
  Sex: Female
  Weight: 36 kg

DRUGS (19)
  1. EVOLTRA [Suspect]
     Indication: ACUTE LYMPHOCYTIC LEUKAEMIA
     Dosage: CYCLE 1; D1-D5
     Dates: start: 20120609, end: 20120613
  2. ETOPOSIDE [Suspect]
     Indication: ACUTE LYMPHOCYTIC LEUKAEMIA
     Dosage: CYCLE 1
     Dates: start: 20120609, end: 20120613
  3. CYCLOPHOSPHAMIDE [Suspect]
     Indication: ACUTE LYMPHOCYTIC LEUKAEMIA
     Dosage: CYCLE 1
     Dates: start: 20120609, end: 20120613
  4. METHOTREXATE [Suspect]
     Indication: ACUTE LYMPHOCYTIC LEUKAEMIA
     Route: 037
     Dates: start: 20120609, end: 20120609
  5. ARACYTINE [Suspect]
     Indication: ACUTE LYMPHOCYTIC LEUKAEMIA
     Route: 037
     Dates: start: 20120725, end: 20120725
  6. HYDROCORTISONE [Suspect]
     Indication: ACUTE LYMPHOCYTIC LEUKAEMIA
     Route: 037
     Dates: start: 20120725, end: 20120725
  7. SPORANOX (ITRACONAZOLE) [Concomitant]
  8. MAGNE-B6 (MAGNESIUM LACTATE, PYRIDOXINE HYDROCHLORIDE) [Concomitant]
  9. LASIX (FUROSEMIDE) [Concomitant]
  10. ZOPHREN (ONDANSETRON HYDROCHLORIDE) [Concomitant]
  11. ARZOMIDOL [Concomitant]
  12. LARGACTIL [Concomitant]
  13. MOFETIL [Concomitant]
  14. LORAFEN (LORAZEPAM) [Concomitant]
  15. AMIKLIN (AMIKACIN) [Concomitant]
  16. TIORFAN [Concomitant]
  17. LASILIX (FUROSEMIDE) [Concomitant]
  18. SPASFON (PHLOROGLUCINOL, TRIMETHYLPHLOROGLUCINOL) [Suspect]
  19. SOLU-MEDROL [Suspect]

REACTIONS (10)
  - Pyelonephritis [None]
  - Lung disorder [None]
  - Sodium retention [None]
  - Renal failure [None]
  - Pleural effusion [None]
  - Pericardial effusion [None]
  - Pancytopenia [None]
  - Febrile neutropenia [None]
  - Escherichia sepsis [None]
  - Mucosal inflammation [None]
